FAERS Safety Report 6863250-0 (Version None)
Quarter: 2010Q3

REPORT INFORMATION
  Report Type: 
  Country: None (occurrence: None)
  Receive Date: 20100721
  Receipt Date: 20100714
  Transmission Date: 20110219
  Serious: Yes (Hospitalization)
  Sender: FDA-Public Use
  Company Number: PHHO2010US10776

PATIENT
  Sex: Male
  Weight: 95 kg

DRUGS (4)
  1. AFINITOR [Suspect]
     Indication: NEOPLASM
     Dosage: 5 MG 3 X WEEK
     Route: 048
     Dates: start: 20100617, end: 20100707
  2. OXALIPLATIN COMP-OXA+ [Suspect]
     Indication: NEOPLASM
     Dosage: 100 MG/M2
     Route: 042
     Dates: start: 20100617
  3. AVASTIN [Suspect]
     Indication: NEOPLASM
     Dosage: UNK
     Route: 042
     Dates: start: 20100617
  4. CAPECITABINE COMP-CAP+TAB [Suspect]
     Indication: NEOPLASM
     Dosage: 680 G/M2
     Route: 048
     Dates: start: 20100617, end: 20100707

REACTIONS (8)
  - ATELECTASIS [None]
  - CHILLS [None]
  - DRUG HYPERSENSITIVITY [None]
  - DYSPNOEA [None]
  - INFECTION [None]
  - NAUSEA [None]
  - PYREXIA [None]
  - VOMITING [None]
